FAERS Safety Report 13214601 (Version 1)
Quarter: 2017Q1

REPORT INFORMATION
  Report Type: Spontaneous
  Country: GB (occurrence: GB)
  Receive Date: 20170210
  Receipt Date: 20170210
  Transmission Date: 20170428
  Serious: Yes (Hospitalization)
  Sender: FDA-Public Use
  Company Number: GB-MYLANLABS-2017M1007372

PATIENT

DRUGS (2)
  1. TAMOXIFEN MYLAN [Suspect]
     Active Substance: TAMOXIFEN
     Indication: GYNAECOMASTIA
     Dosage: 10 MG, QD
     Route: 048
     Dates: end: 20170115
  2. GREEN TEA                          /01578101/ [Suspect]
     Active Substance: GREEN TEA LEAF
     Indication: SUPPLEMENTATION THERAPY

REACTIONS (4)
  - Liver disorder [Not Recovered/Not Resolved]
  - Alanine aminotransferase increased [Not Recovered/Not Resolved]
  - Rhabdomyolysis [Not Recovered/Not Resolved]
  - Blood creatine phosphokinase increased [Not Recovered/Not Resolved]

NARRATIVE: CASE EVENT DATE: 20170106
